FAERS Safety Report 7970243-9 (Version None)
Quarter: 2011Q4

REPORT INFORMATION
  Report Type: 
  Country: None (occurrence: None)
  Receive Date: 20111122
  Receipt Date: 20110729
  Transmission Date: 20120403
  Serious: Yes (Disabling, Other)
  Sender: FDA-Public Use
  Company Number: PHHY2011US59639

PATIENT
  Age: 48 Year
  Sex: Female

DRUGS (1)
  1. GILENYA [Suspect]
     Indication: MULTIPLE SCLEROSIS
     Dosage: 0.5 MG, DAILY, ORAL
     Route: 048
     Dates: start: 20110630, end: 20110718

REACTIONS (10)
  - FATIGUE [None]
  - VISION BLURRED [None]
  - ALOPECIA [None]
  - ASTHENIA [None]
  - DEPRESSION [None]
  - DRY MOUTH [None]
  - PAIN [None]
  - PARAESTHESIA [None]
  - WEIGHT INCREASED [None]
  - TREMOR [None]
